FAERS Safety Report 21669842 (Version 1)
Quarter: 2022Q4

REPORT INFORMATION
  Report Type: Spontaneous
  Country: JP (occurrence: JP)
  Receive Date: 20221201
  Receipt Date: 20221201
  Transmission Date: 20230112
  Serious: Yes (Hospitalization)
  Sender: FDA-Public Use
  Company Number: JP-Eisai-202211384_LEN-EC_P_1

PATIENT
  Age: 52 Year
  Sex: Female

DRUGS (2)
  1. LENVATINIB [Suspect]
     Active Substance: LENVATINIB
     Indication: Endometrial cancer stage III
     Dosage: DOSE AND FREQUENCY UNKNOWN
     Route: 048
  2. KEYTRUDA [Concomitant]
     Active Substance: PEMBROLIZUMAB
     Indication: Endometrial cancer stage III
     Dosage: DOSE AND FREQUENCY UNKNOWN
     Route: 041

REACTIONS (3)
  - COVID-19 [Unknown]
  - Hypothyroidism [Unknown]
  - Hyperthyroidism [Unknown]
